FAERS Safety Report 4700214-7 (Version None)
Quarter: 2005Q2

REPORT INFORMATION
  Report Type: 
  Country: None (occurrence: None)
  Receive Date: 20050623
  Receipt Date: 20050614
  Transmission Date: 20051028
  Serious: Yes (Hospitalization)
  Sender: FDA-Public Use
  Company Number: SU-2005-003669

PATIENT
  Sex: Male

DRUGS (1)
  1. BENICAR [Suspect]
     Dosage: 20 MG QD PO
     Route: 048

REACTIONS (1)
  - RENAL FAILURE [None]
